FAERS Safety Report 7065423-3 (Version None)
Quarter: 2010Q4

REPORT INFORMATION
  Report Type: 
  Country: None (occurrence: None)
  Receive Date: 20101027
  Receipt Date: 20101019
  Transmission Date: 20110411
  Serious: Yes (Life-Threatening)
  Sender: FDA-Public Use
  Company Number: ES-ROCHE-735032

PATIENT
  Age: 61 Year
  Sex: Male

DRUGS (7)
  1. PEGINTERFERON ALFA-2A [Suspect]
     Indication: HEPATITIS C
     Route: 058
     Dates: start: 20100609, end: 20100827
  2. ROCALTROL [Concomitant]
     Dates: start: 20090901
  3. CARVEDILOL [Concomitant]
     Indication: HYPERTENSION
     Route: 048
     Dates: start: 20090901
  4. APROVEL [Concomitant]
     Indication: HYPERTENSION
     Route: 048
     Dates: start: 20090901
  5. CARDYL [Concomitant]
     Indication: DYSLIPIDAEMIA
     Route: 048
     Dates: start: 20090901
  6. URBAL [Concomitant]
     Indication: GLOMERULONEPHRITIS
     Dates: start: 20090901
  7. NEORECORMON [Concomitant]

REACTIONS (2)
  - PANCYTOPENIA [None]
  - SHOCK [None]
